FAERS Safety Report 16290678 (Version 1)
Quarter: 2019Q2

REPORT INFORMATION
  Report Type: Spontaneous
  Country: US (occurrence: US)
  Receive Date: 20190403
  Receipt Date: 20190403
  Transmission Date: 20190711
  Serious: Yes (Death, Hospitalization)
  Sender: FDA-Public Use
  Company Number: None

PATIENT
  Age: 44 Year
  Sex: Female

DRUGS (15)
  1. OXYBUTYNIN. [Concomitant]
     Active Substance: OXYBUTYNIN CHLORIDE
  2. IBUPROFEN. [Concomitant]
     Active Substance: IBUPROFEN
  3. OLANZAPINE. [Concomitant]
     Active Substance: OLANZAPINE
  4. RANITIDINE. [Concomitant]
     Active Substance: RANITIDINE
  5. LOPIRAMIDE [Concomitant]
  6. MIDODRINE [Concomitant]
     Active Substance: MIDODRINE
  7. ESCITALOPRAM [Concomitant]
     Active Substance: ESCITALOPRAM OXALATE
  8. TRAZODONE [Concomitant]
     Active Substance: TRAZODONE HYDROCHLORIDE
  9. SELEXIPAQ [Concomitant]
  10. OPSUMIT [Suspect]
     Active Substance: MACITENTAN
     Indication: PULMONARY HYPERTENSION
     Route: 048
     Dates: start: 201812, end: 201903
  11. SPIRONOLACTONE. [Concomitant]
     Active Substance: SPIRONOLACTONE
  12. SILDENAFIL. [Concomitant]
     Active Substance: SILDENAFIL
  13. LIDOCAINE. [Concomitant]
     Active Substance: LIDOCAINE
  14. OXYCODONE [Concomitant]
     Active Substance: OXYCODONE
  15. TYLENOL [Concomitant]
     Active Substance: ACETAMINOPHEN

REACTIONS (8)
  - Amnesia [None]
  - Loss of consciousness [None]
  - Generalised tonic-clonic seizure [None]
  - Pulseless electrical activity [None]
  - Post concussion syndrome [None]
  - Haematoma [None]
  - Encephalomalacia [None]
  - Syncope [None]

NARRATIVE: CASE EVENT DATE: 20190315
